FAERS Safety Report 5700625-7 (Version None)
Quarter: 2008Q2

REPORT INFORMATION
  Report Type: 
  Country: None (occurrence: None)
  Receive Date: 20080409
  Receipt Date: 20080409
  Transmission Date: 20081010
  Serious: Yes (Other)
  Sender: FDA-Public Use
  Company Number: None

PATIENT
  Age: 46 Year
  Sex: Female
  Weight: 124.7392 kg

DRUGS (4)
  1. CYMBALTA [Suspect]
     Indication: DEPRESSION
     Dosage: 60MG  ONE PO DAILY
     Route: 048
     Dates: start: 20071201
  2. CYMBALTA [Suspect]
     Indication: DIABETIC NEUROPATHY
     Dosage: 60MG  ONE PO DAILY
     Route: 048
     Dates: start: 20071201
  3. CYMBALTA [Suspect]
     Indication: DEPRESSION
     Dosage: 60MG  ONE PO DAILY
     Route: 048
     Dates: start: 20080301
  4. CYMBALTA [Suspect]
     Indication: DIABETIC NEUROPATHY
     Dosage: 60MG  ONE PO DAILY
     Route: 048
     Dates: start: 20080301

REACTIONS (3)
  - BALANCE DISORDER [None]
  - FALL [None]
  - VISION BLURRED [None]
